FAERS Safety Report 8264291-1 (Version None)
Quarter: 2012Q2

REPORT INFORMATION
  Report Type: 
  Country: None (occurrence: None)
  Receive Date: 20120406
  Receipt Date: 20120403
  Transmission Date: 20120825
  Serious: No
  Sender: FDA-Public Use
  Company Number: US-PFIZER INC-2012084513

PATIENT
  Sex: Female
  Weight: 77.098 kg

DRUGS (3)
  1. LIPITOR [Suspect]
     Indication: BLOOD CHOLESTEROL INCREASED
     Dosage: UNK, 1X/DAY
     Route: 048
     Dates: start: 20120101, end: 20120301
  2. OMEPRAZOLE [Concomitant]
     Dosage: UNK
  3. FLUOXETINE [Concomitant]
     Dosage: UNK

REACTIONS (1)
  - POLLAKIURIA [None]
